FAERS Safety Report 22145772 (Version 1)
Quarter: 2023Q1

REPORT INFORMATION
  Report Type: Spontaneous
  Country: IT (occurrence: IT)
  Receive Date: 20230328
  Receipt Date: 20230328
  Transmission Date: 20230417
  Serious: Yes (Hospitalization)
  Sender: FDA-Public Use
  Company Number: None

PATIENT
  Age: 74 Year
  Sex: Male

DRUGS (12)
  1. SERTRALINE [Suspect]
     Active Substance: SERTRALINE HYDROCHLORIDE
     Indication: Panic attack
     Dates: start: 20220101, end: 20230103
  2. ASPIRIN\CLOPIDOGREL [Suspect]
     Active Substance: ASPIRIN\CLOPIDOGREL
     Indication: Antiplatelet therapy
     Dates: start: 20220101, end: 20230103
  3. DOXOFYLLINE [Concomitant]
     Active Substance: DOXOFYLLINE
  4. SILODOSIN [Concomitant]
     Active Substance: SILODOSIN
  5. LASIX [Concomitant]
     Active Substance: FUROSEMIDE
  6. QUETIAPINE [Concomitant]
     Active Substance: QUETIAPINE
  7. Tavor [Concomitant]
  8. FLECAINIDE ACETATE [Concomitant]
     Active Substance: FLECAINIDE ACETATE
  9. LOSARTAN [Concomitant]
     Active Substance: LOSARTAN
  10. XANAX [Concomitant]
     Active Substance: ALPRAZOLAM
  11. FLUTICASONE FUROATE\UMECLIDINIUM BROMIDE\VILANTEROL TRIFENATATE [Concomitant]
     Active Substance: FLUTICASONE FUROATE\UMECLIDINIUM BROMIDE\VILANTEROL TRIFENATATE
  12. PANTOPRAZOLE SODIUM [Concomitant]
     Active Substance: PANTOPRAZOLE SODIUM

REACTIONS (2)
  - Anaemia [Recovering/Resolving]
  - Melaena [Recovering/Resolving]

NARRATIVE: CASE EVENT DATE: 20230103
